FAERS Safety Report 16102877 (Version 1)
Quarter: 2019Q1

REPORT INFORMATION
  Report Type: Other
  Country: ES (occurrence: ES)
  Receive Date: 20190321
  Receipt Date: 20190321
  Transmission Date: 20190418
  Serious: Yes (Life-Threatening, Hospitalization, Disabling)
  Sender: FDA-Public Use
  Company Number: ES-CELLTRION INC.-2019ES019518

PATIENT

DRUGS (1)
  1. INFLIXIMAB (UNKNOWN) [Suspect]
     Active Substance: INFLIXIMAB
     Indication: COLITIS ULCERATIVE
     Dosage: 1 DF (TOTAL)
     Dates: start: 20190227

REACTIONS (1)
  - Haemorrhagic transformation stroke [Recovering/Resolving]

NARRATIVE: CASE EVENT DATE: 20190227
